FAERS Safety Report 6222093-1 (Version None)
Quarter: 2009Q2

REPORT INFORMATION
  Report Type: 
  Country: None (occurrence: None)
  Receive Date: 20090609
  Receipt Date: 20090603
  Transmission Date: 20091009
  Serious: Yes (Hospitalization, Other)
  Sender: FDA-Public Use
  Company Number: 288822

PATIENT
  Age: 26 Year
  Sex: Female

DRUGS (2)
  1. DESMOPRESSIN ACETATE [Suspect]
     Indication: MENORRHAGIA
     Dosage: .3 MCG/KG, INTRAVENOUS
     Route: 042
  2. DESMOPRESSIN ACETATE [Suspect]
     Indication: MENORRHAGIA
     Dosage: 2 DOSES, INTRANASAL
     Route: 045

REACTIONS (12)
  - BLOOD BILIRUBIN UNCONJUGATED INCREASED [None]
  - BLOOD PRESSURE DECREASED [None]
  - COMA [None]
  - DECEREBRATION [None]
  - DIZZINESS [None]
  - FLUSHING [None]
  - GRAND MAL CONVULSION [None]
  - HAEMOLYTIC ANAEMIA [None]
  - HEADACHE [None]
  - HYPONATRAEMIA [None]
  - MENTAL STATUS CHANGES [None]
  - TRANSAMINASES INCREASED [None]
